FAERS Safety Report 4277987-3 (Version None)
Quarter: 2004Q1

REPORT INFORMATION
  Report Type: 
  Country: None (occurrence: None)
  Receive Date: 20040120
  Receipt Date: 20030618
  Transmission Date: 20041129
  Serious: Yes (Hospitalization)
  Sender: FDA-Public Use
  Company Number: 2002IM000617

PATIENT
  Age: 75 Year
  Sex: Male
  Weight: 66.2252 kg

DRUGS (13)
  1. INTERFERON GAMMA-1B [Suspect]
     Indication: LUNG DISORDER
     Dosage: 500 UG;TIW;INHALATION
     Route: 055
     Dates: start: 20011031, end: 20020821
  2. INTERFERON GAMMA-1B [Suspect]
     Indication: MYCOBACTERIUM AVIUM COMPLEX INFECTION
     Dosage: 500 UG;TIW;INHALATION
     Route: 055
     Dates: start: 20011031, end: 20020821
  3. SEREVENT [Concomitant]
  4. FLOVENT [Concomitant]
  5. COMBIVENT [Concomitant]
  6. SINEMET [Concomitant]
  7. THEOPHYLLINE [Concomitant]
  8. AMANTADINE HCL [Concomitant]
  9. GLYCERIN [Concomitant]
  10. EXELON [Concomitant]
  11. BIAXIN [Concomitant]
  12. MYCOBUTIN [Concomitant]
  13. MYAMBUTOL [Concomitant]

REACTIONS (1)
  - PNEUMONIA [None]
